FAERS Safety Report 6661609-8 (Version None)
Quarter: 2010Q1

REPORT INFORMATION
  Report Type: 
  Country: None (occurrence: None)
  Receive Date: 20100331
  Receipt Date: 20090217
  Transmission Date: 20100710
  Serious: No
  Sender: FDA-Public Use
  Company Number: US-BRISTOL-MYERS SQUIBB COMPANY-14508337

PATIENT
  Age: 51 Year
  Sex: Male

DRUGS (3)
  1. ERBITUX [Suspect]
     Indication: COLORECTAL CANCER
     Dosage: 16-FEB-2009 PATIENT RECEIVED ERBITUX WITHOUT OXALIPLATIN
  2. OXALIPLATIN [Suspect]
     Indication: COLORECTAL CANCER
  3. BENADRYL [Concomitant]
     Indication: PREMEDICATION

REACTIONS (1)
  - RASH ERYTHEMATOUS [None]
